FAERS Safety Report 10021489 (Version 1)
Quarter: 2014Q1

REPORT INFORMATION
  Report Type: Spontaneous
  Country: NZ (occurrence: None)
  Receive Date: 20140313
  Receipt Date: 20140313
  Transmission Date: 20141002
  Serious: Yes (Hospitalization)
  Sender: FDA-Public Use
  Company Number: 2014P1002157

PATIENT
  Age: 62 Year
  Sex: Female

DRUGS (2)
  1. PYRIMETHAMINE [Suspect]
     Indication: ESSENTIAL THROMBOCYTHAEMIA
     Dates: start: 199409, end: 2012
  2. HYDROXYUREA [Concomitant]

REACTIONS (5)
  - Atypical pneumonia [None]
  - Compression fracture [None]
  - Plasmablastic lymphoma [None]
  - Epstein-Barr virus test positive [None]
  - Myositis [None]
